FAERS Safety Report 24540035 (Version 1)
Quarter: 2024Q4

REPORT INFORMATION
  Report Type: Spontaneous
  Country: US (occurrence: None)
  Receive Date: 20241022
  Receipt Date: 20241022
  Transmission Date: 20250114
  Serious: Yes (Life-Threatening)
  Sender: Public
  Company Number: None

PATIENT
  Age: 27 Year
  Sex: Male
  Weight: 104.2 kg

DRUGS (1)
  1. LUMASON [Suspect]
     Active Substance: SULFUR HEXAFLUORIDE
     Indication: Ultrasound scan
     Dosage: OTHER FREQUENCY : ONCE;?
     Dates: start: 20241018

REACTIONS (5)
  - Procedural complication [None]
  - Pulmonary embolism [None]
  - Right ventricular dysfunction [None]
  - Anaphylactic shock [None]
  - Cardiac arrest [None]

NARRATIVE: CASE EVENT DATE: 20241018
